FAERS Safety Report 16776536 (Version 5)
Quarter: 2020Q2

REPORT INFORMATION
  Report Type: Report from Study
  Country: CN (occurrence: CN)
  Receive Date: 20190905
  Receipt Date: 20200502
  Transmission Date: 20200713
  Serious: Yes (Hospitalization)
  Sender: FDA-Public Use
  Company Number: CN-ROCHE-2398148

PATIENT
  Age: 68 Year
  Sex: Male
  Weight: 76 kg

DRUGS (11)
  1. RANIBIZUMAB. [Suspect]
     Active Substance: RANIBIZUMAB
     Indication: DIABETIC RETINAL OEDEMA
     Route: 031
  2. RANIBIZUMAB. [Suspect]
     Active Substance: RANIBIZUMAB
     Indication: MACULAR OEDEMA
  3. HYALURONATE SODIUM [Concomitant]
     Active Substance: HYALURONATE SODIUM
     Indication: NEOVASCULAR AGE-RELATED MACULAR DEGENERATION
     Dosage: 0.1 MG
     Route: 031
     Dates: start: 20200417
  4. DIOSMIN [Concomitant]
     Active Substance: DIOSMIN
     Indication: NEOVASCULAR AGE-RELATED MACULAR DEGENERATION
     Dosage: UNK UNK, BID (12 DAYS)
     Route: 065
     Dates: start: 20190823
  5. DIOSMIN [Concomitant]
     Active Substance: DIOSMIN
     Dosage: UNK UNK, BID (12 DAYS)
     Route: 065
     Dates: start: 20190820
  6. RANIBIZUMAB. [Suspect]
     Active Substance: RANIBIZUMAB
     Indication: NEOVASCULAR AGE-RELATED MACULAR DEGENERATION
     Route: 031
     Dates: start: 20190520, end: 20190520
  7. DIOSMIN [Concomitant]
     Active Substance: DIOSMIN
     Dosage: 2 OT, UNK
     Route: 048
     Dates: start: 20190618, end: 20190903
  8. COMPOUND RUTIN [Concomitant]
     Indication: VITRECTOMY
     Route: 065
     Dates: start: 20190820, end: 20190821
  9. FELODIPINE. [Concomitant]
     Active Substance: FELODIPINE
     Indication: HYPERTENSION
     Dosage: UNK UNK, QD
     Route: 048
  10. DIOSMIN [Concomitant]
     Active Substance: DIOSMIN
     Dosage: 2 OT, UNK
     Route: 048
     Dates: start: 20190607
  11. RANIBIZUMAB. [Suspect]
     Active Substance: RANIBIZUMAB
     Indication: RETINAL VEIN OCCLUSION
     Route: 031
     Dates: start: 20190820

REACTIONS (2)
  - Lung disorder [Unknown]
  - Vitreous haemorrhage [Unknown]

NARRATIVE: CASE EVENT DATE: 20190811
